FAERS Safety Report 8487029-1 (Version None)
Quarter: 2012Q3

REPORT INFORMATION
  Report Type: 
  Country: None (occurrence: None)
  Receive Date: 20120704
  Receipt Date: 20120629
  Transmission Date: 20120928
  Serious: Yes (Other)
  Sender: FDA-Public Use
  Company Number: PHFR2012GB003361

PATIENT
  Sex: Female

DRUGS (6)
  1. CLOZARIL [Suspect]
     Indication: SCHIZOPHRENIA
     Dosage: 325 MG, DAILY
     Route: 048
     Dates: start: 20111128, end: 20120401
  2. LANSOPRAZOLE [Concomitant]
     Dosage: 30 MG, UNK
     Route: 048
  3. DULOXETIME HYDROCHLORIDE [Concomitant]
     Dosage: 60 MG, UNK
     Route: 048
  4. ETHOSUXIMIDE [Concomitant]
     Dosage: 500 MG, UNK
     Route: 048
  5. TOPIRAMATE [Concomitant]
     Dosage: 400 MG, UNK
     Route: 048
  6. VALPROATE SODIUM [Concomitant]
     Dosage: 800 MG, UNK
     Route: 048

REACTIONS (3)
  - EPILEPSY [None]
  - SEDATION [None]
  - DRUG INTOLERANCE [None]
